FAERS Safety Report 21266989 (Version 1)
Quarter: 2022Q3

REPORT INFORMATION
  Report Type: Spontaneous
  Country: US (occurrence: None)
  Receive Date: 20220826
  Receipt Date: 20220826
  Transmission Date: 20221026
  Serious: No
  Sender: FDA-Public Use
  Company Number: None

PATIENT
  Age: 41 Year
  Sex: Female

DRUGS (1)
  1. RETACRIT [Suspect]
     Active Substance: EPOETIN ALFA-EPBX
     Indication: End stage renal disease
     Dosage: FREQUENCY : WEEKLY;?
     Route: 058
     Dates: start: 20220802

REACTIONS (2)
  - Product packaging quantity issue [None]
  - Therapy interrupted [None]

NARRATIVE: CASE EVENT DATE: 20220826
